FAERS Safety Report 5907579-9 (Version None)
Quarter: 2008Q4

REPORT INFORMATION
  Report Type: 
  Country: None (occurrence: None)
  Receive Date: 20081003
  Receipt Date: 20080924
  Transmission Date: 20090506
  Serious: Yes (Other)
  Sender: FDA-Public Use
  Company Number: JP-MERCK-0809USA04660

PATIENT
  Weight: 1 kg

DRUGS (3)
  1. HYDROCORTISONE 10MG TAB [Suspect]
     Indication: SYSTEMIC LUPUS ERYTHEMATOSUS
     Route: 064
  2. PREDNISOLONE [Concomitant]
     Route: 064
  3. GLOBULIN, IMMUNE [Concomitant]
     Route: 064

REACTIONS (3)
  - FOETAL GROWTH RETARDATION [None]
  - PREMATURE BABY [None]
  - SMALL FOR DATES BABY [None]
